FAERS Safety Report 11189834 (Version 1)
Quarter: 2015Q2

REPORT INFORMATION
  Report Type: Report from Study
  Country: CO (occurrence: CO)
  Receive Date: 20150615
  Receipt Date: 20150615
  Transmission Date: 20150821
  Serious: Yes (Hospitalization)
  Sender: FDA-Public Use
  Company Number: CO-ABBVIE-15K-036-1407787-00

PATIENT
  Age: 63 Year
  Sex: Female
  Weight: 47 kg

DRUGS (6)
  1. LOSARTAN [Concomitant]
     Active Substance: LOSARTAN
     Indication: PRODUCT USED FOR UNKNOWN INDICATION
  2. HYDROCHLOROTHIAZIDE. [Concomitant]
     Active Substance: HYDROCHLOROTHIAZIDE
     Indication: PRODUCT USED FOR UNKNOWN INDICATION
  3. OMEPRAZOLE. [Concomitant]
     Active Substance: OMEPRAZOLE
     Indication: PRODUCT USED FOR UNKNOWN INDICATION
  4. METHOTREXATE [Concomitant]
     Active Substance: METHOTREXATE
     Indication: PRODUCT USED FOR UNKNOWN INDICATION
  5. CALCITROL [Concomitant]
     Active Substance: CALCITRIOL
     Indication: PRODUCT USED FOR UNKNOWN INDICATION
  6. HUMIRA [Suspect]
     Active Substance: ADALIMUMAB
     Indication: RHEUMATOID ARTHRITIS
     Route: 058
     Dates: start: 20140714, end: 20150520

REACTIONS (11)
  - Malaise [Recovered/Resolved]
  - Rheumatoid nodule [Recovering/Resolving]
  - Joint swelling [Recovering/Resolving]
  - Oedema [Recovering/Resolving]
  - Localised infection [Recovering/Resolving]
  - Cellulitis [Recovering/Resolving]
  - Pyrexia [Recovered/Resolved]
  - Rheumatoid nodule [Recovering/Resolving]
  - Tachycardia [Recovering/Resolving]
  - Erythema [Recovering/Resolving]
  - Hypertension [Recovering/Resolving]

NARRATIVE: CASE EVENT DATE: 201503
